FAERS Safety Report 6070215-8 (Version None)
Quarter: 2009Q1

REPORT INFORMATION
  Report Type: 
  Country: None (occurrence: None)
  Receive Date: 20090209
  Receipt Date: 20090206
  Transmission Date: 20090719
  Serious: Yes (Other)
  Sender: FDA-Public Use
  Company Number: JP-WYE-H08066909

PATIENT

DRUGS (2)
  1. ANCARON [Suspect]
     Indication: VENTRICULAR TACHYCARDIA
     Dosage: 100 MG (FREQUENCY UNSPECIFIED)
     Route: 048
  2. ANCARON [Concomitant]
     Dosage: 150 MG (FREQUENCY UNSPECIFIED)
     Route: 042

REACTIONS (2)
  - LIVER FUNCTION TEST ABNORMAL [None]
  - SHOCK [None]
